FAERS Safety Report 7943297-3 (Version None)
Quarter: 2011Q4

REPORT INFORMATION
  Report Type: 
  Country: None (occurrence: None)
  Receive Date: 20111128
  Receipt Date: 20111122
  Transmission Date: 20120403
  Serious: Yes (Other)
  Sender: FDA-Public Use
  Company Number: PHEH2008US10232

PATIENT
  Sex: Female

DRUGS (14)
  1. ZOMETA [Suspect]
     Indication: BONE LOSS
     Dosage: UNK
     Dates: start: 20030101, end: 20070214
  2. KLONOPIN [Concomitant]
  3. AREDIA [Suspect]
     Indication: OSTEOPOROSIS
  4. FENTANYL-100 [Concomitant]
  5. AREDIA [Suspect]
     Indication: BONE LOSS
     Dosage: UNK
     Dates: start: 20030101, end: 20070101
  6. VITAMIN B-12 [Concomitant]
  7. DILTIAZEM HCL [Concomitant]
  8. METRONIDAZOLE [Concomitant]
  9. AROMASIN [Concomitant]
  10. LEVAQUIN [Concomitant]
  11. LUNESTA [Concomitant]
  12. ALBUTEROL [Concomitant]
  13. ZOMETA [Suspect]
     Indication: OSTEOPOROSIS
  14. SYMBICORT [Concomitant]

REACTIONS (45)
  - VOCAL CORD PARALYSIS [None]
  - DYSPEPSIA [None]
  - COUGH [None]
  - PLEURAL FIBROSIS [None]
  - EPIGLOTTIC OEDEMA [None]
  - ORAL DISORDER [None]
  - CATARACT [None]
  - MYOPIA [None]
  - RENAL CYST [None]
  - HYPERTENSION [None]
  - OROPHARYNGEAL PAIN [None]
  - EMPHYSEMA [None]
  - DEHYDRATION [None]
  - FAILURE TO THRIVE [None]
  - VISION BLURRED [None]
  - NASAL CONGESTION [None]
  - RHINORRHOEA [None]
  - SPINAL OSTEOARTHRITIS [None]
  - HYPERMETROPIA [None]
  - OSTEONECROSIS OF JAW [None]
  - INSOMNIA [None]
  - MUSCLE SPASMS [None]
  - HYPOKALAEMIA [None]
  - PHARYNGEAL MASS [None]
  - EYELID PTOSIS [None]
  - CEREBRAL ISCHAEMIA [None]
  - PAIN [None]
  - ANXIETY [None]
  - ARTHRALGIA [None]
  - DYSPNOEA [None]
  - ABDOMINAL PAIN [None]
  - INJURY [None]
  - DIZZINESS [None]
  - DIARRHOEA [None]
  - HEADACHE [None]
  - PHYSICAL DISABILITY [None]
  - PAIN IN JAW [None]
  - WEIGHT DECREASED [None]
  - EAR PAIN [None]
  - ARTERIOSCLEROSIS [None]
  - CACHEXIA [None]
  - ORAL PAIN [None]
  - DEPRESSION [None]
  - INTERVERTEBRAL DISC DEGENERATION [None]
  - HYPONATRAEMIA [None]
